FAERS Safety Report 8004876-0 (Version None)
Quarter: 2011Q4

REPORT INFORMATION
  Report Type: 
  Country: None (occurrence: None)
  Receive Date: 20111223
  Receipt Date: 20111223
  Transmission Date: 20120403
  Serious: Yes (Life-Threatening, Hospitalization, Other)
  Sender: FDA-Public Use
  Company Number: None

PATIENT
  Age: 81 Year
  Sex: Female
  Weight: 76 kg

DRUGS (2)
  1. ENOXAPARIN [Suspect]
     Indication: ATRIAL FIBRILLATION
     Route: 058
     Dates: start: 20111203, end: 20111205
  2. WARFARIN [Concomitant]

REACTIONS (9)
  - GASTROINTESTINAL HAEMORRHAGE [None]
  - ASPIRATION [None]
  - DIALYSIS [None]
  - RETROPERITONEAL HAEMATOMA [None]
  - ILEUS [None]
  - HAEMOGLOBIN DECREASED [None]
  - HYPOTENSION [None]
  - ABDOMINAL PAIN [None]
  - RENAL FAILURE ACUTE [None]
